FAERS Safety Report 6166927-8 (Version None)
Quarter: 2009Q2

REPORT INFORMATION
  Report Type: 
  Country: None (occurrence: None)
  Receive Date: 20090424
  Receipt Date: 20090414
  Transmission Date: 20091009
  Serious: Yes (Other)
  Sender: FDA-Public Use
  Company Number: UA-AVENTIS-200914006GDDC

PATIENT
  Age: 53 Year
  Sex: Female

DRUGS (2)
  1. LANTUS [Suspect]
     Indication: TYPE 2 DIABETES MELLITUS
     Route: 058
     Dates: start: 20070804
  2. OPTIPEN (INSULIN PUMP) [Suspect]
     Dates: start: 20070804

REACTIONS (5)
  - BUNDLE BRANCH BLOCK [None]
  - ELECTROCARDIOGRAM ABNORMAL [None]
  - ELECTROCARDIOGRAM LOW VOLTAGE [None]
  - QRS AXIS ABNORMAL [None]
  - TRANSIENT ISCHAEMIC ATTACK [None]
